FAERS Safety Report 7539976-2 (Version None)
Quarter: 2011Q2

REPORT INFORMATION
  Report Type: 
  Country: None (occurrence: None)
  Receive Date: 20110603
  Receipt Date: 20110524
  Transmission Date: 20111010
  Serious: Yes (Other)
  Sender: FDA-Public Use
  Company Number: ACO_24575_2011

PATIENT
  Age: 52 Year
  Sex: Female

DRUGS (10)
  1. DETROL [Concomitant]
  2. LISINOPRIL [Concomitant]
  3. VELBUTRIN (BUPROPION HYDROCHLORIDE) [Concomitant]
  4. AVONEX [Concomitant]
  5. AMPYRA [Suspect]
     Indication: PRODUCT USED FOR UNKNOWN INDICATION
     Dosage: 10 MG, BID, ORAL
     Route: 048
     Dates: start: 20110301, end: 20110301
  6. VALIUM [Concomitant]
  7. LORATADINE [Concomitant]
  8. ASPIRIN [Concomitant]
  9. ELAVIL [Concomitant]
  10. SEREVENT [Concomitant]

REACTIONS (9)
  - CONVULSION [None]
  - EUPHORIC MOOD [None]
  - WRONG TECHNIQUE IN DRUG USAGE PROCESS [None]
  - THERAPEUTIC RESPONSE UNEXPECTED [None]
  - THERAPY CESSATION [None]
  - DRUG ADMINISTRATION ERROR [None]
  - URINARY TRACT INFECTION [None]
  - FEELING ABNORMAL [None]
  - DYSPHAGIA [None]
